FAERS Safety Report 8773874 (Version 1)
Quarter: 2012Q4

REPORT INFORMATION
  Report Type: 
  Country: US (occurrence: US)
  Receive Date: 20120907
  Receipt Date: 20120907
  Transmission Date: 20130627
  Serious: Yes (Other)
  Sender: FDA-Public Use
  Company Number: US-PFIZER INC-2012218627

PATIENT
  Age: 83 Year
  Sex: Male
  Weight: 83.9 kg

DRUGS (13)
  1. GABAPENTIN [Suspect]
     Indication: GLOSSOPHARYNGEAL NEURALGIA
     Dosage: 300 mg, 1x/day
     Route: 048
     Dates: start: 201207
  2. DIOVAN [Concomitant]
     Dosage: UNK, 1x/day
  3. PROTONIX [Concomitant]
     Dosage: UNK, 1x/day
  4. TOPROL [Concomitant]
     Dosage: UNK, 1x/day
  5. JANUVIA [Concomitant]
     Dosage: UNK, 1x/day
  6. PLAVIX [Concomitant]
     Dosage: UNK, 1x/day
  7. POTASSIUM [Concomitant]
     Dosage: UNK, 1x/day
  8. ALLOPURINOL [Concomitant]
     Dosage: UNK, 1x/day
  9. AVODART [Concomitant]
     Dosage: UNK, 1x/day
  10. FLOMAX [Concomitant]
     Dosage: UNK, 1x/day
  11. GLYBURIDE [Concomitant]
     Dosage: UNK, 1x/day
  12. LAMICTAL [Concomitant]
     Dosage: UNK, 1x/day
  13. CRESTOR [Concomitant]
     Dosage: UNK, 3x/week

REACTIONS (3)
  - Blood glucose fluctuation [Unknown]
  - Memory impairment [Unknown]
  - Crying [Unknown]
